FAERS Safety Report 8092767-9 (Version None)
Quarter: 2012Q1

REPORT INFORMATION
  Report Type: 
  Country: None (occurrence: None)
  Receive Date: 20120128
  Receipt Date: 20110811
  Transmission Date: 20120608
  Serious: Yes (Hospitalization, Other)
  Sender: FDA-Public Use
  Company Number: US-ABBOTT-11P-163-0846019-00

PATIENT
  Age: 49 Year
  Sex: Female

DRUGS (4)
  1. ENTOCORT EC [Concomitant]
     Indication: CROHN'S DISEASE
  2. HUMIRA [Suspect]
     Indication: CROHN'S DISEASE
     Dates: start: 20101105, end: 20101201
  3. ASACOL [Concomitant]
     Indication: CROHN'S DISEASE
  4. NEXIUM [Concomitant]
     Indication: GASTROOESOPHAGEAL REFLUX DISEASE

REACTIONS (7)
  - INTESTINAL PERFORATION [None]
  - VOMITING [None]
  - PAIN [None]
  - PANIC ATTACK [None]
  - DEPRESSION [None]
  - ANXIETY [None]
  - BLOOD POTASSIUM DECREASED [None]
